FAERS Safety Report 10284351 (Version 1)
Quarter: 2014Q3

REPORT INFORMATION
  Report Type: Spontaneous
  Country: JP (occurrence: None)
  Receive Date: 20140703
  Receipt Date: 20140703
  Transmission Date: 20150326
  Serious: Yes (Hospitalization)
  Sender: FDA-Public Use
  Company Number: B1005700A

PATIENT
  Age: 63 Year
  Sex: Female

DRUGS (13)
  1. ESOMEPRAZOLE [Concomitant]
     Active Substance: ESOMEPRAZOLE
  2. ELDECALCITOL [Concomitant]
     Active Substance: ELDECALCITOL
  3. DIPHENIDOL HYDROCHLORIDE [Concomitant]
     Active Substance: DIPHENIDOL HYDROCHLORIDE
  4. PAROXETINE HYDROCHLORIDE TABLET (PAROXETINE HYDROCHLORIDE) [Suspect]
     Active Substance: PAROXETINE HYDROCHLORIDE
     Indication: DEPRESSION
     Dosage: 10 MG/PER DAY
     Route: 048
     Dates: start: 201303, end: 201406
  5. ROSUVASTATIN CALCIUM [Concomitant]
     Active Substance: ROSUVASTATIN CALCIUM
  6. SARPOGRELATE HYDROCHLORIDE [Concomitant]
     Active Substance: SARPOGRELATE
  7. RISEDRONIC ACID [Concomitant]
     Active Substance: RISEDRONIC ACID
  8. CHONDROITIN SULPHATE [Concomitant]
     Active Substance: SODIUM CHONDROITIN SULFATE
  9. DIAZEPAM. [Concomitant]
     Active Substance: DIAZEPAM
  10. LOXOPROFEN [Concomitant]
     Active Substance: LOXOPROFEN
  11. AMLODIPINE [Concomitant]
     Active Substance: AMLODIPINE BESYLATE
  12. FEBUXOSTAT. [Concomitant]
     Active Substance: FEBUXOSTAT
  13. LIMAPROST [Concomitant]
     Active Substance: LIMAPROST

REACTIONS (1)
  - Inappropriate antidiuretic hormone secretion [None]

NARRATIVE: CASE EVENT DATE: 20140606
